FAERS Safety Report 7112873-2 (Version None)
Quarter: 2010Q4

REPORT INFORMATION
  Report Type: 
  Country: None (occurrence: None)
  Receive Date: 20101119
  Receipt Date: 20100223
  Transmission Date: 20110411
  Serious: No
  Sender: FDA-Public Use
  Company Number: US-BRISTOL-MYERS SQUIBB COMPANY-14989123

PATIENT
  Age: 86 Year
  Sex: Female
  Weight: 57 kg

DRUGS (5)
  1. AVALIDE [Suspect]
     Indication: HYPERTENSION
     Dates: start: 20091101
  2. COUMADIN [Concomitant]
  3. LEVOTHYROXINE SODIUM [Concomitant]
  4. METOPROLOL [Concomitant]
  5. ZETIA [Concomitant]

REACTIONS (3)
  - BALANCE DISORDER [None]
  - HEADACHE [None]
  - NAUSEA [None]
